FAERS Safety Report 8539032-0 (Version None)
Quarter: 2012Q3

REPORT INFORMATION
  Report Type: 
  Country: None (occurrence: None)
  Receive Date: 20120713
  Receipt Date: 20120629
  Transmission Date: 20120928
  Serious: Yes (Hospitalization)
  Sender: FDA-Public Use
  Company Number: DSU-2012-05283

PATIENT
  Age: 71 Year
  Sex: Female

DRUGS (3)
  1. MERCAPTOPURINE [Concomitant]
  2. BENICAR [Suspect]
     Indication: HYPERTENSION
     Dosage: PER ORAL, PER ORAL, UNK PER ORAL
     Route: 048
     Dates: end: 20100801
  3. BENICAR [Suspect]
     Indication: HYPERTENSION
     Dosage: PER ORAL, PER ORAL, UNK PER ORAL
     Route: 048
     Dates: start: 20100818, end: 20100831

REACTIONS (7)
  - DIARRHOEA [None]
  - WEIGHT DECREASED [None]
  - NAUSEA [None]
  - HYPOTENSION [None]
  - HIP FRACTURE [None]
  - VOMITING [None]
  - COELIAC DISEASE [None]
